FAERS Safety Report 10162303 (Version 1)
Quarter: 2014Q2

REPORT INFORMATION
  Report Type: Spontaneous
  Country: FR (occurrence: FR)
  Receive Date: 20140509
  Receipt Date: 20140509
  Transmission Date: 20141212
  Serious: Yes (Life-Threatening)
  Sender: FDA-Public Use
  Company Number: FR-ASTRAZENECA-2014SE30999

PATIENT
  Age: 23329 Day
  Sex: Male

DRUGS (13)
  1. INEXIUM [Suspect]
     Dosage: 40-80 MG QD/ 40 MG BID
     Route: 048
     Dates: start: 20140303, end: 20140411
  2. VANCOMYCINE [Suspect]
     Route: 042
     Dates: start: 20140315, end: 20140318
  3. VANCOMYCINE [Suspect]
     Route: 042
     Dates: start: 20140320, end: 20140405
  4. CIFLOX [Suspect]
     Route: 048
     Dates: start: 20140317, end: 20140411
  5. XANAX [Suspect]
     Route: 048
     Dates: start: 20140330, end: 20140411
  6. AUGMENTIN [Concomitant]
     Route: 042
     Dates: start: 20140308, end: 20140317
  7. FLAGYL [Concomitant]
     Route: 048
     Dates: start: 20140407, end: 20140411
  8. ZOPICLONE [Concomitant]
     Route: 048
     Dates: start: 20140303, end: 20140330
  9. LOVENOX [Concomitant]
     Route: 058
     Dates: start: 20140303
  10. ACUPAN [Concomitant]
     Dosage: 20 TO 80 MG QD
     Route: 042
     Dates: start: 201401, end: 20140318
  11. SMOFKABIVEN [Concomitant]
     Dosage: 2200 CAL , 1 DF  DAILY
     Route: 042
     Dates: start: 20140303, end: 20140411
  12. DIFFU K [Concomitant]
     Route: 048
     Dates: start: 20140303, end: 20140411
  13. MOTILIUM [Concomitant]
     Route: 048
     Dates: start: 20140303, end: 20140411

REACTIONS (7)
  - Cell death [Recovering/Resolving]
  - Multi-organ failure [Recovering/Resolving]
  - Haemodynamic instability [Recovering/Resolving]
  - Drug reaction with eosinophilia and systemic symptoms [Recovering/Resolving]
  - Cardiogenic shock [Recovering/Resolving]
  - Rash [Recovering/Resolving]
  - Cholestasis [Recovering/Resolving]
